FAERS Safety Report 20547741 (Version 3)
Quarter: 2022Q2

REPORT INFORMATION
  Report Type: Spontaneous
  Country: US (occurrence: US)
  Receive Date: 20220303
  Receipt Date: 20220518
  Transmission Date: 20220721
  Serious: No
  Sender: FDA-Public Use
  Company Number: US-PFIZER INC-2021582651

PATIENT
  Age: 58 Year
  Sex: Female
  Weight: 94.8 kg

DRUGS (4)
  1. LYRICA [Suspect]
     Active Substance: PREGABALIN
     Indication: Neuropathy peripheral
     Dosage: 300 MG, 2X/DAY
     Route: 048
     Dates: start: 2017
  2. LYRICA [Suspect]
     Active Substance: PREGABALIN
     Dosage: UNK
     Dates: start: 202105
  3. LYRICA [Suspect]
     Active Substance: PREGABALIN
     Dosage: 150 MG, 2X/DAY (ONE CAPSULE BY MOUTH, TWICE A DAY, ONE IN THE MORNING AND ONE AT NIGHT)
     Route: 048
  4. TIMOLOL [Concomitant]
     Active Substance: TIMOLOL
     Dosage: UNK, 4X/DAY

REACTIONS (5)
  - Pain [Not Recovered/Not Resolved]
  - Crying [Unknown]
  - Sleep disorder [Unknown]
  - Screaming [Unknown]
  - Poor quality sleep [Unknown]

NARRATIVE: CASE EVENT DATE: 20210501
